FAERS Safety Report 6596155-3 (Version None)
Quarter: 2010Q1

REPORT INFORMATION
  Report Type: 
  Country: None (occurrence: None)
  Receive Date: 20100219
  Receipt Date: 20100219
  Transmission Date: 20100710
  Serious: Yes (Hospitalization)
  Sender: FDA-Public Use
  Company Number: None

PATIENT
  Age: 27 Year
  Sex: Male

DRUGS (1)
  1. CODEINE/GUAIFENESIN [Suspect]
     Indication: COUGH
     Dosage: 5 ML PRN PO
     Route: 048
     Dates: start: 20090310, end: 20090929

REACTIONS (2)
  - HYPERSENSITIVITY [None]
  - PANIC ATTACK [None]
